FAERS Safety Report 15017690 (Version 1)
Quarter: 2018Q2

REPORT INFORMATION
  Report Type: Spontaneous
  Country: US (occurrence: US)
  Receive Date: 20180531
  Receipt Date: 20180531
  Transmission Date: 20180711
  Serious: Yes (Other)
  Sender: FDA-Public Use
  Company Number: None

PATIENT
  Age: 37 Year
  Sex: Female
  Weight: 54 kg

DRUGS (4)
  1. MULTIVITAMIN [Concomitant]
     Active Substance: VITAMINS
  2. ER AMPHETAMINE [Concomitant]
  3. COPAXONE [Suspect]
     Active Substance: GLATIRAMER ACETATE
     Indication: MULTIPLE SCLEROSIS
     Dosage: ?          QUANTITY:1 DF DOSAGE FORM;?
     Route: 058
     Dates: start: 20180406, end: 20180509
  4. DULOXETINE DR [Concomitant]
     Active Substance: DULOXETINE

REACTIONS (6)
  - Presyncope [None]
  - Injection site mass [None]
  - Dizziness [None]
  - Fatigue [None]
  - Injection site erythema [None]
  - Injection site haemorrhage [None]

NARRATIVE: CASE EVENT DATE: 20180416
